FAERS Safety Report 14508227 (Version 1)
Quarter: 2018Q1

REPORT INFORMATION
  Report Type: Spontaneous
  Country: US (occurrence: US)
  Receive Date: 20180209
  Receipt Date: 20180209
  Transmission Date: 20180509
  Serious: Yes (Other)
  Sender: FDA-Public Use
  Company Number: US-ROCHE-2065244

PATIENT
  Age: 61 Year
  Sex: Female

DRUGS (11)
  1. TRAMADOL HCL [Concomitant]
     Active Substance: TRAMADOL HYDROCHLORIDE
  2. DIOVAN [Concomitant]
     Active Substance: VALSARTAN
  3. ATORVASTATIN [Concomitant]
     Active Substance: ATORVASTATIN
  4. CYMBALTA [Concomitant]
     Active Substance: DULOXETINE HYDROCHLORIDE
  5. ACTEMRA [Suspect]
     Active Substance: TOCILIZUMAB
     Indication: RHEUMATOID ARTHRITIS
     Route: 042
     Dates: start: 20161014
  6. VITAMIN C [Concomitant]
     Active Substance: ASCORBIC ACID
  7. ACIPHEX [Concomitant]
     Active Substance: RABEPRAZOLE SODIUM
  8. METFORMIN [Concomitant]
     Active Substance: METFORMIN HYDROCHLORIDE
     Route: 065
  9. OMEGA 3 PLUS [Concomitant]
  10. PROBIOTIC (ENZYMES, INC) [Concomitant]
  11. LYRICA [Concomitant]
     Active Substance: PREGABALIN

REACTIONS (3)
  - Fatigue [Unknown]
  - Hernia [Unknown]
  - Rheumatoid arthritis [Unknown]

NARRATIVE: CASE EVENT DATE: 201710
